FAERS Safety Report 5316052-0 (Version None)
Quarter: 2007Q2

REPORT INFORMATION
  Report Type: 
  Country: None (occurrence: None)
  Receive Date: 20070503
  Receipt Date: 20070423
  Transmission Date: 20071010
  Serious: Yes (Hospitalization)
  Sender: FDA-Public Use
  Company Number: FR-PFIZER INC-2007033141

PATIENT
  Age: 53 Year
  Sex: Female

DRUGS (8)
  1. NEURONTIN [Suspect]
     Route: 048
     Dates: start: 20070301, end: 20070323
  2. ENALAPRIL MALEATE AND HYDROCHLOROTHIAZIDE [Suspect]
     Route: 048
  3. LYRICA [Suspect]
     Route: 048
  4. METFORMIN HCL [Concomitant]
  5. OMEPRAZOLE [Concomitant]
  6. QUININE SULFATE [Concomitant]
  7. CLONAZEPAM [Concomitant]
  8. THIAMINE [Concomitant]

REACTIONS (1)
  - NEUTROPENIA [None]
